FAERS Safety Report 7048390-8 (Version None)
Quarter: 2010Q4

REPORT INFORMATION
  Report Type: 
  Country: None (occurrence: None)
  Receive Date: 20101015
  Receipt Date: 20101015
  Transmission Date: 20110411
  Serious: No
  Sender: FDA-Public Use
  Company Number: None

PATIENT
  Sex: Female
  Weight: 91.173 kg

DRUGS (1)
  1. OMEPRAZOLE [Suspect]
     Dosage: 20 MG BID PO
     Route: 048

REACTIONS (1)
  - TREATMENT FAILURE [None]
